FAERS Safety Report 5821113-3 (Version None)
Quarter: 2008Q3

REPORT INFORMATION
  Report Type: 
  Country: None (occurrence: None)
  Receive Date: 20080724
  Receipt Date: 20080717
  Transmission Date: 20090109
  Serious: Yes (Hospitalization, Other)
  Sender: FDA-Public Use
  Company Number: CH-ABBOTT-08P-151-0463236-00

PATIENT
  Age: 62 Year
  Sex: Male

DRUGS (20)
  1. CLARITHROMYCIN [Suspect]
     Indication: RHODOCOCCUS INFECTION
  2. CYCLOSPORINE [Interacting]
     Indication: IMMUNOSUPPRESSANT DRUG THERAPY
     Dosage: NOT REPORTED
  3. CYCLOSPORINE [Interacting]
  4. CYCLOSPORINE [Interacting]
     Dosage: NOT REPORTED
  5. SIMVASTATIN [Interacting]
     Indication: DRUG USE FOR UNKNOWN INDICATION
  6. PREDNISONE TAB [Concomitant]
     Indication: IMMUNOSUPPRESSANT DRUG THERAPY
     Dosage: NOT REPORTED
  7. PREDNISONE TAB [Concomitant]
  8. AZATHIOPRINE [Concomitant]
     Indication: IMMUNOSUPPRESSANT DRUG THERAPY
     Dosage: NOT REPORTED
  9. MYCOPHENOLATE SODIUM [Concomitant]
     Indication: IMMUNOSUPPRESSANT DRUG THERAPY
     Dosage: NOT REPORTED
  10. MYCOPHENOLIC ACID [Concomitant]
     Indication: DRUG USE FOR UNKNOWN INDICATION
  11. MYCOPHENOLIC ACID [Concomitant]
  12. MYCOPHENOLIC ACID [Concomitant]
  13. ACETYLSALICYLIC ACID SRT [Concomitant]
     Indication: DRUG USE FOR UNKNOWN INDICATION
  14. ESOMEPRAZOLE MAGNESIUM [Concomitant]
     Indication: DRUG USE FOR UNKNOWN INDICATION
  15. ANTIHYPERTENSIVES [Concomitant]
     Indication: DRUG USE FOR UNKNOWN INDICATION
     Dosage: NOT REPORTED
  16. ERGOCALCIFEROL [Concomitant]
     Indication: DRUG USE FOR UNKNOWN INDICATION
     Dosage: NOT REPORTED
  17. ALENDRONIC ACID [Concomitant]
     Indication: DRUG USE FOR UNKNOWN INDICATION
  18. AMOXICILLIN + CLAVULANATE POTASSIUM [Concomitant]
     Indication: PNEUMONIA
  19. VANCOMYCIN HCL [Concomitant]
     Indication: RHODOCOCCUS INFECTION
     Dosage: TARGET TROUGH LEVEL 10-20 MG/L
     Route: 042
  20. CIPROFLOXACIN [Concomitant]
     Indication: RHODOCOCCUS INFECTION
     Route: 048

REACTIONS (2)
  - DRUG INTERACTION [None]
  - MYOPATHY [None]
